FAERS Safety Report 15735848 (Version 1)
Quarter: 2018Q4

REPORT INFORMATION
  Report Type: Spontaneous
  Country: US (occurrence: US)
  Receive Date: 20181218
  Receipt Date: 20181218
  Transmission Date: 20190205
  Serious: Yes (Other)
  Sender: FDA-Public Use
  Company Number: PHEH2018US052258

PATIENT
  Age: 74 Year
  Sex: Female
  Weight: 84.82 kg

DRUGS (5)
  1. FEMARA [Suspect]
     Active Substance: LETROZOLE
     Indication: BREAST CANCER STAGE IV
     Route: 065
  2. IBRANCE [Suspect]
     Active Substance: PALBOCICLIB
     Dosage: UNK
     Route: 065
     Dates: start: 20180809, end: 201811
  3. FASLODEX [Concomitant]
     Active Substance: FULVESTRANT
     Indication: BREAST CANCER STAGE IV
     Dosage: UNK
     Dates: start: 201606
  4. IBRANCE [Suspect]
     Active Substance: PALBOCICLIB
     Indication: BREAST CANCER STAGE IV
     Dosage: 100 MG, QD
     Route: 048
     Dates: start: 201606
  5. XGEVA [Concomitant]
     Active Substance: DENOSUMAB
     Indication: BREAST CANCER STAGE IV
     Dosage: UNK
     Route: 065
     Dates: start: 201501

REACTIONS (13)
  - Conjunctivitis [Unknown]
  - Peripheral swelling [Recovered/Resolved]
  - Erythema [Unknown]
  - Peripheral swelling [Recovering/Resolving]
  - Chest pain [Recovering/Resolving]
  - Pyrexia [Unknown]
  - Full blood count decreased [Recovered/Resolved]
  - Muscle spasms [Unknown]
  - Infection [Recovered/Resolved]
  - Back pain [Recovering/Resolving]
  - Cellulitis [Unknown]
  - Pain [Unknown]
  - Drug ineffective [Unknown]

NARRATIVE: CASE EVENT DATE: 201808
